FAERS Safety Report 22076019 (Version 1)
Quarter: 2023Q1

REPORT INFORMATION
  Report Type: Report from Study
  Country: US (occurrence: US)
  Receive Date: 20230308
  Receipt Date: 20230308
  Transmission Date: 20230417
  Serious: Yes (Other)
  Sender: FDA-Public Use
  Company Number: US-JNJFOC-20230313795

PATIENT
  Age: 28 Year
  Sex: Male

DRUGS (2)
  1. SPRAVATO [Suspect]
     Active Substance: ESKETAMINE
     Indication: Depression
     Dosage: ^56 MG, 1 TOTAL DOSE^
     Dates: start: 20230224, end: 20230224
  2. SPRAVATO [Suspect]
     Active Substance: ESKETAMINE
     Dosage: RECENT DOSE (84 MG): 03-MAR-2023?^84 MG, 2 TOTAL DOSES^
     Dates: start: 20230228, end: 20230228

REACTIONS (4)
  - Hallucination [Unknown]
  - Disorientation [Unknown]
  - Dizziness [Unknown]
  - Depression [Unknown]

NARRATIVE: CASE EVENT DATE: 20230201
